FAERS Safety Report 13228811 (Version 1)
Quarter: 2017Q1

REPORT INFORMATION
  Report Type: Report from Study
  Country: US (occurrence: US)
  Receive Date: 20170213
  Receipt Date: 20170213
  Transmission Date: 20170428
  Serious: Yes (Other)
  Sender: FDA-Public Use
  Company Number: US-ELI_LILLY_AND_COMPANY-US201405010433

PATIENT
  Age: 43 Year
  Sex: Male
  Weight: 95 kg

DRUGS (3)
  1. CYMBALTA [Suspect]
     Active Substance: DULOXETINE HYDROCHLORIDE
     Indication: ANXIETY
     Dosage: 90 MG, UNKNOWN
     Route: 048
     Dates: start: 20130128, end: 201405
  2. CYMBALTA [Suspect]
     Active Substance: DULOXETINE HYDROCHLORIDE
     Indication: DEPRESSION
     Dosage: 30 MG, UNKNOWN
     Route: 048
     Dates: start: 20120829
  3. CYMBALTA [Suspect]
     Active Substance: DULOXETINE HYDROCHLORIDE
     Indication: NEURALGIA
     Dosage: 60 MG, UNKNOWN
     Route: 048
     Dates: start: 20120926

REACTIONS (15)
  - Withdrawal syndrome [Unknown]
  - Paraesthesia [Unknown]
  - Panic attack [Unknown]
  - Irritability [Unknown]
  - Psychiatric symptom [Unknown]
  - Activities of daily living impaired [Unknown]
  - Anxiety [Unknown]
  - Rash [Unknown]
  - Affect lability [Unknown]
  - Nausea [Unknown]
  - Crying [Unknown]
  - Insomnia [Unknown]
  - Suicidal ideation [Unknown]
  - Dysphoria [Unknown]
  - Depression [Unknown]

NARRATIVE: CASE EVENT DATE: 201406
